FAERS Safety Report 11037127 (Version 1)
Quarter: 2015Q2

REPORT INFORMATION
  Report Type: Spontaneous
  Country: US (occurrence: None)
  Receive Date: 20150415
  Receipt Date: 20150415
  Transmission Date: 20150821
  Serious: No
  Sender: FDA-Public Use
  Company Number: None

PATIENT
  Age: 52 Year
  Sex: Female

DRUGS (3)
  1. VICODIN [Suspect]
     Active Substance: ACETAMINOPHEN\HYDROCODONE BITARTRATE
  2. CYMBALTA [Suspect]
     Active Substance: DULOXETINE HYDROCHLORIDE
  3. MELOXICAM. [Suspect]
     Active Substance: MELOXICAM

REACTIONS (18)
  - Amnesia [None]
  - Drug hypersensitivity [None]
  - Dyspnoea [None]
  - Blood iron decreased [None]
  - Somnolence [None]
  - Chest pain [None]
  - Gastric haemorrhage [None]
  - Dizziness [None]
  - Depression [None]
  - Headache [None]
  - Internal haemorrhage [None]
  - Musculoskeletal chest pain [None]
  - Confusional state [None]
  - Vision blurred [None]
  - Asthenia [None]
  - Fatigue [None]
  - Anaemia [None]
  - Blood count abnormal [None]

NARRATIVE: CASE EVENT DATE: 2014
